FAERS Safety Report 15903905 (Version 2)
Quarter: 2019Q1

REPORT INFORMATION
  Report Type: Spontaneous
  Country: ES (occurrence: ES)
  Receive Date: 20190204
  Receipt Date: 20190211
  Transmission Date: 20190417
  Serious: Yes (Other)
  Sender: FDA-Public Use
  Company Number: ES-ACCORD-105427

PATIENT
  Age: 57 Year
  Sex: Male

DRUGS (2)
  1. AMLODIPINE [Suspect]
     Active Substance: AMLODIPINE BESYLATE
     Indication: HYPERTENSION
     Dosage: ONE TABLET IN THE MORNING
     Route: 048
     Dates: start: 20120703
  2. VERAPAMIL [Suspect]
     Active Substance: VERAPAMIL HYDROCHLORIDE
     Indication: NEPHROANGIOSCLEROSIS
     Dosage: STRENGTH: 240 MG, ?30 TABLETS
     Route: 048
     Dates: start: 20180522

REACTIONS (2)
  - Tooth loss [Unknown]
  - Gingival hypertrophy [Recovered/Resolved with Sequelae]

NARRATIVE: CASE EVENT DATE: 2017
